FAERS Safety Report 15617528 (Version 1)
Quarter: 2018Q4

REPORT INFORMATION
  Report Type: Spontaneous
  Country: US (occurrence: US)
  Receive Date: 20181114
  Receipt Date: 20181114
  Transmission Date: 20190205
  Serious: Yes (Disabling)
  Sender: FDA-Public Use
  Company Number: None

PATIENT
  Age: 36 Year
  Sex: Female
  Weight: 82.35 kg

DRUGS (13)
  1. B COMPLES [Concomitant]
  2. MAGNESIUM MALATE [Concomitant]
  3. SKELAXEN [Concomitant]
  4. INDOCIN [Concomitant]
     Active Substance: INDOMETHACIN
  5. ASPIRIN. [Concomitant]
     Active Substance: ASPIRIN
  6. FIORICET [Concomitant]
     Active Substance: ACETAMINOPHEN\BUTALBITAL\CAFFEINE
  7. METHERGINE [Concomitant]
     Active Substance: METHYLERGONOVINE MALEATE
  8. ALDACTONE [Concomitant]
     Active Substance: SPIRONOLACTONE
  9. TORADOL [Concomitant]
     Active Substance: KETOROLAC TROMETHAMINE
  10. MIGRANAL [Concomitant]
     Active Substance: DIHYDROERGOTAMINE MESYLATE
  11. FLONASE [Concomitant]
     Active Substance: FLUTICASONE PROPIONATE
  12. AIMOVIG [Suspect]
     Active Substance: ERENUMAB-AOOE
     Indication: MIGRAINE
     Dosage: ?          QUANTITY:1 INJECTION(S);OTHER FREQUENCY:ONCE A MONTH;?
     Route: 058
     Dates: start: 20181012, end: 20181114
  13. PRILOSEC [Concomitant]
     Active Substance: OMEPRAZOLE MAGNESIUM

REACTIONS (5)
  - Alopecia [None]
  - Impaired work ability [None]
  - Therapeutic response decreased [None]
  - Middle ear effusion [None]
  - Ear pain [None]

NARRATIVE: CASE EVENT DATE: 20181022
